FAERS Safety Report 6736488-0 (Version None)
Quarter: 2010Q2

REPORT INFORMATION
  Report Type: 
  Country: None (occurrence: None)
  Receive Date: 20100521
  Receipt Date: 20100517
  Transmission Date: 20101027
  Serious: Yes (Disabling)
  Sender: FDA-Public Use
  Company Number: GB-EISAI INC.-E2090-01184-SPO-GB

PATIENT
  Age: 55 Year
  Sex: Male

DRUGS (3)
  1. ZONISAMIDE [Suspect]
     Indication: EPILEPSY
     Route: 048
     Dates: start: 20080601, end: 20090401
  2. ZONISAMIDE [Suspect]
     Route: 048
     Dates: start: 20090401, end: 20100203
  3. KEPPRA [Concomitant]
     Indication: EPILEPSY
     Route: 048
     Dates: start: 20020101

REACTIONS (9)
  - ACUTE PSYCHOSIS [None]
  - AGGRESSION [None]
  - AGITATION [None]
  - HALLUCINATION [None]
  - INSOMNIA [None]
  - IRRITABILITY [None]
  - PARANOIA [None]
  - SOCIAL AVOIDANT BEHAVIOUR [None]
  - TENSION [None]
